FAERS Safety Report 9455668 (Version 1)
Quarter: 2013Q3

REPORT INFORMATION
  Report Type: Spontaneous
  Country: US (occurrence: US)
  Receive Date: 20130813
  Receipt Date: 20130813
  Transmission Date: 20140515
  Serious: No
  Sender: FDA-Public Use
  Company Number: US-TEVA-425211USA

PATIENT
  Sex: Female
  Weight: 90.8 kg

DRUGS (1)
  1. NUVIGIL [Suspect]
     Indication: HYPERSOMNIA
     Route: 048
     Dates: start: 201109, end: 201203

REACTIONS (3)
  - Tachycardia [Unknown]
  - Hypersomnia [Unknown]
  - Drug ineffective [Unknown]
